FAERS Safety Report 8213934-7 (Version None)
Quarter: 2012Q1

REPORT INFORMATION
  Report Type: 
  Country: None (occurrence: None)
  Receive Date: 20120316
  Receipt Date: 20120305
  Transmission Date: 20120608
  Serious: Yes (Hospitalization, Other)
  Sender: FDA-Public Use
  Company Number: DK-ELI_LILLY_AND_COMPANY-DK201203001364

PATIENT
  Sex: Male

DRUGS (1)
  1. PRASUGREL HYDROCHLORIDE [Suspect]
     Indication: STENT PLACEMENT
     Dosage: UNK, UNKNOWN

REACTIONS (2)
  - GALLBLADDER DISORDER [None]
  - HAEMORRHAGE [None]
